FAERS Safety Report 16521812 (Version 2)
Quarter: 2019Q3

REPORT INFORMATION
  Report Type: Spontaneous
  Country: US (occurrence: US)
  Receive Date: 20190703
  Receipt Date: 20190814
  Transmission Date: 20191004
  Serious: No
  Sender: FDA-Public Use
  Company Number: US-ASTRAZENECA-2019SE86450

PATIENT
  Sex: Male
  Weight: 63.5 kg

DRUGS (2)
  1. SYMBICORT [Suspect]
     Active Substance: BUDESONIDE\FORMOTEROL FUMARATE DIHYDRATE
     Indication: CHRONIC OBSTRUCTIVE PULMONARY DISEASE
     Dosage: 160/4.5 MCG 2 PUFFS TWICE A DAY
     Route: 055
     Dates: start: 2013
  2. LUPRON [Concomitant]
     Active Substance: LEUPROLIDE ACETATE
     Dates: start: 2017

REACTIONS (3)
  - Device failure [Unknown]
  - Malaise [Unknown]
  - Intentional device misuse [Unknown]
